FAERS Safety Report 8662458 (Version 3)
Quarter: 2013Q2

REPORT INFORMATION
  Report Type: Spontaneous
  Country: US (occurrence: US)
  Receive Date: 20120712
  Receipt Date: 20130402
  Transmission Date: 20140414
  Serious: No
  Sender: FDA-Public Use
  Company Number: US-PFIZER INC-2012166598

PATIENT
  Age: 54 Year
  Sex: Male
  Weight: 113 kg

DRUGS (12)
  1. GEODON [Suspect]
     Indication: ANGER
     Dosage: 20 MG, 2X/DAY
  2. GEODON [Suspect]
     Indication: SCHIZOPHRENIA
     Dosage: 80 MG, 2X/DAY
     Route: 048
  3. GEODON [Suspect]
     Indication: BIPOLAR DISORDER
  4. TRILEPTAL [Suspect]
     Indication: AFFECTIVE DISORDER
     Dosage: 400 MG, DAILY
     Dates: start: 2011, end: 201204
  5. CELEXA [Concomitant]
     Indication: DEPRESSION
     Dosage: 20 MG, DAILY
  6. CELEXA [Concomitant]
     Indication: MOOD ALTERED
  7. KLONOPIN [Concomitant]
     Indication: ANXIETY
     Dosage: 8 MG, UNK
  8. VISTARIL [Concomitant]
     Indication: ANTIALLERGIC THERAPY
     Dosage: 50 MG, UNK
  9. VISTARIL [Concomitant]
     Indication: ANXIETY
  10. DOXEPIN [Concomitant]
     Indication: ANTIALLERGIC THERAPY
     Dosage: 25 MG, DAILY
  11. AMBIEN [Concomitant]
     Indication: SLEEP DISORDER
     Dosage: 10 MG, UNK
  12. LITHIUM [Concomitant]
     Indication: MOOD ALTERED

REACTIONS (3)
  - Rash macular [Not Recovered/Not Resolved]
  - Skin burning sensation [Recovered/Resolved]
  - Rash [Recovering/Resolving]
